FAERS Safety Report 17535864 (Version 1)
Quarter: 2020Q1

REPORT INFORMATION
  Report Type: Report from Study
  Country: None (occurrence: CH)
  Receive Date: 20200313
  Receipt Date: 20200313
  Transmission Date: 20200409
  Serious: Yes (Congenital Anomaly, Other)
  Sender: FDA-Public Use
  Company Number: CH-UNICHEM PHARMACEUTICALS (USA) INC-UCM202003-000289

PATIENT

DRUGS (4)
  1. SALBUTAMOL [Suspect]
     Active Substance: ALBUTEROL
     Indication: FOETAL EXPOSURE DURING PREGNANCY
  2. SALMETEROL [Suspect]
     Active Substance: SALMETEROL
     Indication: FOETAL EXPOSURE DURING PREGNANCY
  3. LAMOTRIGINE. [Suspect]
     Active Substance: LAMOTRIGINE
     Indication: FOETAL EXPOSURE DURING PREGNANCY
  4. LEVOTHYROXINE. [Suspect]
     Active Substance: LEVOTHYROXINE
     Indication: FOETAL EXPOSURE DURING PREGNANCY

REACTIONS (2)
  - Foetal exposure during pregnancy [Unknown]
  - Congenital cardiovascular anomaly [Unknown]
